FAERS Safety Report 9449583 (Version 1)
Quarter: 2013Q3

REPORT INFORMATION
  Report Type: Spontaneous
  Country: FR (occurrence: FR)
  Receive Date: 20130809
  Receipt Date: 20130809
  Transmission Date: 20140515
  Serious: Yes (Death)
  Sender: FDA-Public Use
  Company Number: FR-ALEXION PHARMACEUTICALS INC.-A201301811

PATIENT
  Age: 18 Year
  Sex: Male

DRUGS (2)
  1. SOLIRIS 300MG [Suspect]
     Indication: HAEMOLYSIS
     Dosage: 900 MG, Q2W
     Route: 042
     Dates: start: 20130607
  2. SOLIRIS 300MG [Suspect]
     Indication: OFF LABEL USE

REACTIONS (1)
  - Sepsis [Fatal]
